FAERS Safety Report 9839932 (Version 1)
Quarter: 2014Q1

REPORT INFORMATION
  Report Type: Spontaneous
  Country: US (occurrence: None)
  Receive Date: 20140117
  Receipt Date: 20140117
  Transmission Date: 20141002
  Serious: No
  Sender: FDA-Public Use
  Company Number: None

PATIENT
  Sex: Male

DRUGS (1)
  1. TECFIDERA [Suspect]
     Dosage: END DATE OF USE GIVEN 1/5/13  ??
     Route: 048
     Dates: start: 20131216

REACTIONS (1)
  - Depression [None]
